FAERS Safety Report 7211199-6 (Version None)
Quarter: 2011Q1

REPORT INFORMATION
  Report Type: 
  Country: None (occurrence: None)
  Receive Date: 20110105
  Receipt Date: 20101229
  Transmission Date: 20110831
  Serious: Yes (Other)
  Sender: FDA-Public Use
  Company Number: CA-JNJFOC-20101209126

PATIENT
  Sex: Female
  Weight: 64 kg

DRUGS (4)
  1. INFLIXIMAB [Suspect]
     Indication: CROHN'S DISEASE
     Route: 042
  2. SALMON OIL [Concomitant]
  3. LIPITOR [Concomitant]
  4. VITAMIN B-12 [Concomitant]

REACTIONS (1)
  - BREAST PAIN [None]
